FAERS Safety Report 6930662-6 (Version None)
Quarter: 2010Q3

REPORT INFORMATION
  Report Type: 
  Country: None (occurrence: None)
  Receive Date: 20100818
  Receipt Date: 20100713
  Transmission Date: 20110219
  Serious: No
  Sender: FDA-Public Use
  Company Number: A0870203A

PATIENT
  Age: 25 Year
  Sex: Female

DRUGS (2)
  1. COREG CR [Suspect]
     Indication: LEFT VENTRICULAR DYSFUNCTION
     Dosage: 40MG PER DAY
     Route: 048
     Dates: start: 20090701
  2. PRENATAL VITAMINS [Concomitant]

REACTIONS (1)
  - DRUG EXPOSURE DURING PREGNANCY [None]
